FAERS Safety Report 10728414 (Version 3)
Quarter: 2015Q1

REPORT INFORMATION
  Report Type: Not Available
  Country: US (occurrence: US)
  Receive Date: 20150122
  Receipt Date: 20150128
  Transmission Date: 20150721
  Serious: Yes (Other)
  Sender: FDA-Public Use
  Company Number: US-LUPIN PHARMACEUTICALS INC.-E2B_00002987

PATIENT
  Age: 21 Year
  Sex: Male
  Weight: 64.47 kg

DRUGS (2)
  1. ONDANSTERON [Concomitant]
     Indication: PRODUCT USED FOR UNKNOWN INDICATION
     Route: 065
  2. CEPHALEXIN CAPSULES 500 MG [Suspect]
     Active Substance: CEPHALEXIN
     Indication: LYMPHADENOPATHY
     Dates: start: 20141210, end: 20141213

REACTIONS (7)
  - Hepatitis [Recovering/Resolving]
  - Chromaturia [Recovering/Resolving]
  - Rash generalised [Not Recovered/Not Resolved]
  - Regurgitation [Recovering/Resolving]
  - Vomiting [Recovering/Resolving]
  - Dehydration [Recovering/Resolving]
  - Infectious mononucleosis [Recovering/Resolving]

NARRATIVE: CASE EVENT DATE: 20141213
